FAERS Safety Report 8251288-0 (Version None)
Quarter: 2012Q2

REPORT INFORMATION
  Report Type: 
  Country: None (occurrence: None)
  Receive Date: 20120402
  Receipt Date: 20120330
  Transmission Date: 20120825
  Serious: Yes (Hospitalization)
  Sender: FDA-Public Use
  Company Number: KR-ABBOTT-12P-090-0918868-00

PATIENT
  Age: 56 Year
  Sex: Female
  Weight: 58 kg

DRUGS (26)
  1. CALCORT [Concomitant]
     Indication: RHEUMATOID ARTHRITIS
     Dosage: 2 TABLETS DAILY
     Route: 048
     Dates: start: 20110516, end: 20120104
  2. MYPHARM FOLIC ACID [Concomitant]
     Indication: VITAMIN B COMPLEX DEFICIENCY
     Dosage: 1 TABLET DAILY
     Route: 048
     Dates: start: 20110516
  3. PARAMACET [Concomitant]
     Indication: ANTIINFLAMMATORY THERAPY
     Dosage: SEMI TAB, 2 TABLETS DAILY
     Route: 048
     Dates: start: 20110516, end: 20120202
  4. AMARYL [Concomitant]
     Indication: DIABETES MELLITUS
     Dosage: 1.5 TABLET DAILY
     Route: 048
  5. COUGH [Concomitant]
     Indication: PRODUCTIVE COUGH
  6. PHENIRAMINE [Concomitant]
     Indication: ANTIALLERGIC THERAPY
     Dosage: 3A DAILY
     Route: 042
     Dates: start: 20120116, end: 20120118
  7. COUGH [Concomitant]
     Indication: ANTITUSSIVE THERAPY
     Dosage: 80 MILLILITER DAILY
     Route: 048
     Dates: start: 20120118, end: 20120118
  8. ERDOS [Concomitant]
     Indication: PRODUCTIVE COUGH
  9. GLUPA [Concomitant]
     Indication: DIABETES MELLITUS
     Dosage: 2 TABLETS DAILY
     Route: 048
  10. LEVOTUSS [Concomitant]
     Indication: PRODUCTIVE COUGH
  11. ILSUNG AUGUMENTIN [Concomitant]
     Indication: ANTIBIOTIC THERAPY
     Dosage: 3 TABLETS DAILY
     Route: 048
     Dates: start: 20120120, end: 20120126
  12. COZAAR [Concomitant]
     Route: 048
     Dates: start: 20120120
  13. DISOLIN [Concomitant]
     Indication: RHEUMATOID ARTHRITIS
     Dosage: 40 MG DAILY
     Route: 042
     Dates: start: 20120116, end: 20120116
  14. AROBEST [Concomitant]
     Indication: PRODUCT USED FOR UNKNOWN INDICATION
     Dosage: 3 TABLETS DAILY
     Route: 048
     Dates: start: 20120118, end: 20120127
  15. LEVOTUSS [Concomitant]
     Indication: ANTITUSSIVE THERAPY
     Dosage: 3 TABLETS DAILY
     Route: 048
     Dates: start: 20120120, end: 20120126
  16. COZAAR [Concomitant]
     Indication: HYPERTENSION
     Dosage: 2 TABLETS DAILY
     Route: 048
     Dates: end: 20120119
  17. YUHAN METHOTREXATE [Concomitant]
     Indication: RHEUMATOID ARTHRITIS
     Dosage: 5 SYRINGE DAILY
     Route: 048
     Dates: start: 20110919
  18. HUMIRA [Suspect]
     Indication: RHEUMATOID ARTHRITIS
     Route: 058
     Dates: start: 20111024
  19. METHOTREXATE SODIUM [Concomitant]
     Indication: RHEUMATOID ARTHRITIS
     Dosage: 1 SYRINGE DAILY
     Route: 030
     Dates: start: 20111024
  20. ERDOS [Concomitant]
     Indication: ANTITUSSIVE THERAPY
     Dosage: 2 CAPSULES DAILY
     Route: 048
     Dates: start: 20120120, end: 20120126
  21. UCERAX [Concomitant]
     Indication: ANXIOLYTIC THERAPY
     Dosage: 2 TABLETS DAILY
     Route: 048
     Dates: start: 20120116, end: 20120119
  22. CALCORT [Concomitant]
     Route: 048
     Dates: start: 20120105, end: 20120202
  23. PANTOPRAZOLE SODIUM [Concomitant]
     Indication: PEPTIC ULCER
     Dosage: 1 TABLET DAILY
     Route: 048
     Dates: start: 20110503, end: 20120202
  24. MYM METHOCARBAMOL [Concomitant]
     Indication: MUSCLE RELAXANT THERAPY
     Dosage: 1G/10ML VIAL, 1 VIAL DAILY
     Route: 042
     Dates: start: 20120104, end: 20120117
  25. ALLEGRA [Concomitant]
     Indication: ANTIALLERGIC THERAPY
     Dosage: 1 TABLET DAILY
     Route: 048
     Dates: start: 20120116, end: 20120118
  26. PIPERACILLIN AND TAZOBACTAM [Concomitant]
     Indication: ANTIBIOTIC THERAPY
     Dosage: 3 VIALS DAILY
     Route: 042
     Dates: start: 20120119, end: 20120119

REACTIONS (2)
  - ARTHRALGIA [None]
  - JOINT SWELLING [None]
